FAERS Safety Report 10203362 (Version 1)
Quarter: 2014Q2

REPORT INFORMATION
  Report Type: Spontaneous
  Country: US (occurrence: US)
  Receive Date: 20140529
  Receipt Date: 20140529
  Transmission Date: 20141212
  Serious: No
  Sender: FDA-Public Use
  Company Number: US-ASTRAZENECA-2014SE31836

PATIENT
  Sex: Male

DRUGS (1)
  1. NEXIUM EERD (DELAYED RELEASE) [Suspect]
     Route: 048

REACTIONS (8)
  - Diabetes mellitus [Not Recovered/Not Resolved]
  - Angina pectoris [Unknown]
  - Gastric disorder [Unknown]
  - Polyp [Unknown]
  - Hepatic cirrhosis [Unknown]
  - Spleen disorder [Unknown]
  - Hepatitis [Unknown]
  - Unable to afford prescribed medication [Unknown]
